FAERS Safety Report 20536692 (Version 1)
Quarter: 2022Q1

REPORT INFORMATION
  Report Type: Spontaneous
  Country: FR (occurrence: FR)
  Receive Date: 20220302
  Receipt Date: 20220302
  Transmission Date: 20220424
  Serious: Yes (Hospitalization)
  Sender: FDA-Public Use
  Company Number: FR-JNJFOC-20211043981

PATIENT

DRUGS (1)
  1. DARZALEX [Suspect]
     Active Substance: DARATUMUMAB
     Indication: POEMS syndrome
     Route: 058

REACTIONS (3)
  - Bronchospasm [Recovered/Resolved]
  - Off label use [Unknown]
  - Product use in unapproved indication [Unknown]
